FAERS Safety Report 7857376 (Version 3)
Quarter: 2012Q4

REPORT INFORMATION
  Report Type: 
  Country: US (occurrence: US)
  Receive Date: 20110316
  Receipt Date: 20121226
  Transmission Date: 20130627
  Serious: Yes (Hospitalization)
  Sender: FDA-Public Use
  Company Number: US-BAYER-2011-021552

PATIENT
  Age: 30 Year
  Sex: Female
  Weight: 63 kg

DRUGS (14)
  1. YAZ [Suspect]
     Indication: ACNE
     Dosage: UNK
     Dates: start: 200907, end: 201003
  2. YAZ [Suspect]
     Indication: PREMENSTRUAL SYNDROME
  3. MOTRIN [Concomitant]
     Dosage: UNK UNK, PRN
     Dates: start: 2001, end: 2011
  4. ASCORBIC ACID [Concomitant]
     Dosage: UNK UNK, PRN
     Dates: start: 2001, end: 2011
  5. CELEXA [Concomitant]
     Indication: DEPRESSION
     Dosage: 20 mg, CONT
     Dates: start: 2009, end: 2010
  6. FLEXERIL [Concomitant]
     Dosage: 5 mg, PRN
     Route: 048
  7. LORTAB [Concomitant]
  8. NAPROXEN [Concomitant]
  9. XANAX [Concomitant]
     Dosage: 0.25 mg, PRN
     Route: 048
  10. DILAUDID [Concomitant]
     Route: 042
  11. ZOFRAN [Concomitant]
     Route: 042
  12. METOPROLOL [Concomitant]
  13. PREVACID [Concomitant]
  14. ARIXTRA [Concomitant]

REACTIONS (5)
  - Pulmonary embolism [None]
  - Injury [None]
  - Pain [None]
  - Emotional distress [None]
  - Anxiety [None]
